FAERS Safety Report 21294125 (Version 1)
Quarter: 2022Q3

REPORT INFORMATION
  Report Type: Spontaneous
  Country: IN (occurrence: IN)
  Receive Date: 20220905
  Receipt Date: 20220905
  Transmission Date: 20221027
  Serious: Yes (Death)
  Sender: FDA-Public Use
  Company Number: IN-PFIZER INC-PV202200052106

PATIENT
  Age: 13 Year
  Sex: Male

DRUGS (4)
  1. METHYLPREDNISOLONE SODIUM SUCCINATE [Suspect]
     Active Substance: METHYLPREDNISOLONE SODIUM SUCCINATE
     Indication: Multisystem inflammatory syndrome in children
     Dosage: 40 MG, 1X/DAY
     Route: 042
  2. HUMAN IMMUNOGLOBULIN G [Suspect]
     Active Substance: HUMAN IMMUNOGLOBULIN G
     Indication: Multisystem inflammatory syndrome in children
     Dosage: UNK
     Route: 042
  3. UNSPECIFIED INGREDIENT [Suspect]
     Active Substance: UNSPECIFIED INGREDIENT
     Indication: Multisystem inflammatory syndrome in children
     Dosage: 0.4 CC, DAILY
  4. PIPERACILLIN AND TAZOBACTAM [Suspect]
     Active Substance: PIPERACILLIN SODIUM\TAZOBACTAM SODIUM
     Indication: Multisystem inflammatory syndrome in children
     Dosage: 4.5 G, 3X/DAY

REACTIONS (3)
  - Cardio-respiratory arrest [Fatal]
  - Drug ineffective for unapproved indication [Fatal]
  - Off label use [Unknown]
